FAERS Safety Report 16977408 (Version 1)
Quarter: 2019Q4

REPORT INFORMATION
  Report Type: Spontaneous
  Country: FR (occurrence: FR)
  Receive Date: 20191031
  Receipt Date: 20191031
  Transmission Date: 20200122
  Serious: Yes (Hospitalization, Other)
  Sender: FDA-Public Use
  Company Number: FR-SUN PHARMACEUTICAL INDUSTRIES LTD-2019RR-225635

PATIENT
  Age: 40 Year
  Sex: Female

DRUGS (1)
  1. FYREMADEL 0,25 MG/0,5 ML SOLUTION INJECTABLE EN SERINGUE PR?-REMPLIE [Suspect]
     Active Substance: GANIRELIX ACETATE
     Indication: CONTROLLED OVARIAN STIMULATION
     Dosage: UNK
     Route: 065
     Dates: start: 20191014, end: 20191016

REACTIONS (7)
  - Hypersensitivity [Recovering/Resolving]
  - Paraesthesia oral [Recovering/Resolving]
  - Angioedema [Recovering/Resolving]
  - Therapy partial responder [Unknown]
  - Erythema [Unknown]
  - Swelling face [Recovering/Resolving]
  - Paraesthesia [Recovering/Resolving]

NARRATIVE: CASE EVENT DATE: 20191014
